FAERS Safety Report 24659853 (Version 1)
Quarter: 2024Q4

REPORT INFORMATION
  Report Type: Report from Study
  Country: US (occurrence: US)
  Receive Date: 20241125
  Receipt Date: 20241125
  Transmission Date: 20250115
  Serious: Yes (Hospitalization, Other)
  Sender: TAKEDA
  Company Number: US-TAKEDA-2024TUS116068

PATIENT
  Age: 57 Year
  Sex: Female

DRUGS (8)
  1. TEDUGLUTIDE [Suspect]
     Active Substance: TEDUGLUTIDE
     Indication: Short-bowel syndrome
     Dosage: 2.3 MILLIGRAM, QD
     Dates: start: 20150207
  2. TEDUGLUTIDE [Suspect]
     Active Substance: TEDUGLUTIDE
  3. TEDUGLUTIDE [Suspect]
     Active Substance: TEDUGLUTIDE
  4. TEDUGLUTIDE [Suspect]
     Active Substance: TEDUGLUTIDE
  5. HYDROCORTISONE [Concomitant]
     Active Substance: HYDROCORTISONE
     Indication: Hypotension
     Dosage: 50 MILLIGRAM, BID
     Dates: start: 20221231, end: 20230101
  6. HYDROCORTISONE [Concomitant]
     Active Substance: HYDROCORTISONE
     Dosage: 25 MILLIGRAM, BID
     Dates: start: 20230102, end: 20230103
  7. HYDROCORTISONE [Concomitant]
     Active Substance: HYDROCORTISONE
     Dosage: 15 MILLIGRAM, BID
     Dates: start: 20230104
  8. DIFLUCAN [Concomitant]
     Active Substance: FLUCONAZOLE
     Indication: Septic shock
     Dosage: 200 MILLIGRAM, QD
     Dates: start: 20221230

REACTIONS (1)
  - Pyelonephritis [Recovered/Resolved]

NARRATIVE: CASE EVENT DATE: 20240213
